FAERS Safety Report 16500385 (Version 4)
Quarter: 2019Q3

REPORT INFORMATION
  Report Type: Spontaneous
  Country: US (occurrence: US)
  Receive Date: 20190701
  Receipt Date: 20190910
  Transmission Date: 20191004
  Serious: Yes (Death, Hospitalization, Other)
  Sender: FDA-Public Use
  Company Number: US-ROCHE-2341626

PATIENT
  Sex: Male

DRUGS (2)
  1. METHOTREXATE. [Suspect]
     Active Substance: METHOTREXATE
     Indication: MULTIPLE SCLEROSIS
     Route: 065
  2. OCREVUS [Suspect]
     Active Substance: OCRELIZUMAB
     Indication: MULTIPLE SCLEROSIS
     Route: 065
     Dates: start: 201810

REACTIONS (9)
  - Death [Fatal]
  - Rash [Recovering/Resolving]
  - Respiratory disorder [Unknown]
  - Mouth ulceration [Recovering/Resolving]
  - Pneumonia [Recovering/Resolving]
  - Immune system disorder [Recovering/Resolving]
  - Herpes virus infection [Unknown]
  - White blood cell count decreased [Unknown]
  - Skin infection [Unknown]

NARRATIVE: CASE EVENT DATE: 20190704
